FAERS Safety Report 7827473-6 (Version None)
Quarter: 2011Q4

REPORT INFORMATION
  Report Type: 
  Country: None (occurrence: None)
  Receive Date: 20111020
  Receipt Date: 20111018
  Transmission Date: 20120403
  Serious: Yes (Hospitalization)
  Sender: FDA-Public Use
  Company Number: AU-ROCHE-775429

PATIENT
  Sex: Female

DRUGS (6)
  1. KEFLEX [Concomitant]
  2. CHLORAMPHENICOL [Concomitant]
  3. TEMAZEPAM [Concomitant]
     Dates: start: 20110318, end: 20110428
  4. ACETAMINOPHEN [Concomitant]
     Dates: start: 20110417, end: 20110418
  5. PEG-INTERFERON ALFA 2A [Suspect]
     Indication: HEPATITIS C
     Route: 058
     Dates: start: 20101029, end: 20110408
  6. COPEGUS [Suspect]
     Indication: HEPATITIS C
     Route: 048
     Dates: start: 20101029, end: 20110415

REACTIONS (12)
  - DYSPNOEA [None]
  - FEELING COLD [None]
  - FATIGUE [None]
  - PALPITATIONS [None]
  - NEUTROPENIA [None]
  - WHITE BLOOD CELL COUNT DECREASED [None]
  - PAIN [None]
  - CHILLS [None]
  - CHEST PAIN [None]
  - PANIC REACTION [None]
  - SYNCOPE [None]
  - PYREXIA [None]
